FAERS Safety Report 6272109-1 (Version None)
Quarter: 2009Q3

REPORT INFORMATION
  Report Type: 
  Country: None (occurrence: None)
  Receive Date: 20090717
  Receipt Date: 20090709
  Transmission Date: 20100115
  Serious: Yes (Other)
  Sender: FDA-Public Use
  Company Number: B0584323A

PATIENT
  Sex: Female
  Weight: 55 kg

DRUGS (1)
  1. SEROXAT [Suspect]
     Indication: POST-TRAUMATIC STRESS DISORDER
     Dosage: 20MG PER DAY
     Route: 048
     Dates: start: 20051009, end: 20060101

REACTIONS (3)
  - DRUG WITHDRAWAL SYNDROME [None]
  - NIGHTMARE [None]
  - SUICIDAL IDEATION [None]
